FAERS Safety Report 8712863 (Version 2)
Quarter: 2013Q1

REPORT INFORMATION
  Report Type: Report from Study
  Country: US (occurrence: US)
  Receive Date: 20120808
  Receipt Date: 20130312
  Transmission Date: 20140127
  Serious: Yes (Other)
  Sender: FDA-Public Use
  Company Number: US-ABBOTT-12P-163-0948583-00

PATIENT
  Age: 68 None
  Sex: 0
  Weight: 90.8 kg

DRUGS (1)
  1. HUMIRA [Suspect]
     Indication: PSORIASIS
     Dosage: STARTED WITH LOADING DOSE THEN 1IN 2 WKS
     Dates: start: 20110718, end: 20120130

REACTIONS (6)
  - Superior vena cava syndrome [Unknown]
  - Small cell lung cancer metastatic [Not Recovered/Not Resolved]
  - Lymphoma [Not Recovered/Not Resolved]
  - Hepatic cancer [Not Recovered/Not Resolved]
  - Dyspnoea [Unknown]
  - Dyspnoea [Unknown]
